FAERS Safety Report 13271746 (Version 1)
Quarter: 2017Q1

REPORT INFORMATION
  Report Type: Spontaneous
  Country: IN (occurrence: IN)
  Receive Date: 20170227
  Receipt Date: 20170227
  Transmission Date: 20170428
  Serious: Yes (Other)
  Sender: FDA-Public Use
  Company Number: IN-FLAMINGO-000520

PATIENT
  Age: 43 Year
  Sex: Male
  Weight: 50 kg

DRUGS (4)
  1. METRONIDAZOLE. [Suspect]
     Active Substance: METRONIDAZOLE
     Indication: DIARRHOEA
     Dosage: 8 HOURLY
  2. LOMINE [Concomitant]
  3. PARACETAMOL [Concomitant]
     Active Substance: ACETAMINOPHEN
     Dosage: 12 HOURLY FOR 3 DAYS
  4. NORFLOXACIN/NORFLOXACIN HYDROCHLORIDE [Suspect]
     Active Substance: NORFLOXACIN HYDROCHLORIDE
     Indication: DIARRHOEA
     Dosage: 12 HOURLY

REACTIONS (1)
  - Fixed drug eruption [Recovered/Resolved]
